FAERS Safety Report 4626360-4 (Version None)
Quarter: 2005Q2

REPORT INFORMATION
  Report Type: 
  Country: None (occurrence: None)
  Receive Date: 20050404
  Receipt Date: 20050321
  Transmission Date: 20051028
  Serious: Yes (Other)
  Sender: FDA-Public Use
  Company Number: NL-GLAXOSMITHKLINE-B0376131A

PATIENT
  Age: 58 Year
  Sex: Male

DRUGS (5)
  1. LAMOTRIGINE [Suspect]
     Indication: DRUG USE FOR UNKNOWN INDICATION
     Dosage: 200MG PER DAY
     Route: 065
  2. LITHIUM [Concomitant]
     Dosage: 800MG PER DAY
  3. THYRAX [Concomitant]
     Dosage: .025MG PER DAY
  4. ZYPREXA [Concomitant]
     Dosage: 2MG AS REQUIRED
  5. LORAZEPAM [Concomitant]
     Dosage: 2MG AS REQUIRED

REACTIONS (2)
  - ARRHYTHMIA [None]
  - STRESS [None]
